FAERS Safety Report 14685573 (Version 1)
Quarter: 2018Q1

REPORT INFORMATION
  Report Type: Spontaneous
  Country: US (occurrence: US)
  Receive Date: 20180327
  Receipt Date: 20180327
  Transmission Date: 20180509
  Serious: No
  Sender: FDA-Public Use
  Company Number: US-009507513-1803USA009424

PATIENT
  Age: 46 Year
  Sex: Female

DRUGS (2)
  1. INTRON A [Suspect]
     Active Substance: INTERFERON ALFA-2B
     Indication: ANOGENITAL WARTS
     Dosage: 3 TIMES A WEEK
     Route: 026
     Dates: start: 20180215
  2. INTRON A [Suspect]
     Active Substance: INTERFERON ALFA-2B
     Dosage: 3 TIMES A WEEK
     Route: 026

REACTIONS (1)
  - Pain [Unknown]

NARRATIVE: CASE EVENT DATE: 201802
